FAERS Safety Report 5149972-0 (Version None)
Quarter: 2006Q4

REPORT INFORMATION
  Report Type: 
  Country: None (occurrence: None)
  Receive Date: 20061108
  Receipt Date: 20061026
  Transmission Date: 20070319
  Serious: Yes (Other)
  Sender: FDA-Public Use
  Company Number: 2006080488

PATIENT
  Age: 74 Year
  Sex: Male
  Weight: 68.0396 kg

DRUGS (1)
  1. SUTENT [Suspect]
     Indication: RENAL CELL CARCINOMA STAGE UNSPECIFIED
     Dosage: 50 MG (50 MG, 1 IN 1 D), ORAL
     Route: 048
     Dates: start: 20060529, end: 20060601

REACTIONS (7)
  - ABASIA [None]
  - DISORIENTATION [None]
  - HAEMATOCHEZIA [None]
  - HAEMORRHAGE [None]
  - HYPERSOMNIA [None]
  - LETHARGY [None]
  - WALKING AID USER [None]
